FAERS Safety Report 9412486 (Version 3)
Quarter: 2014Q3

REPORT INFORMATION
  Report Type: Spontaneous
  Country: US (occurrence: US)
  Receive Date: 20130722
  Receipt Date: 20140808
  Transmission Date: 20150326
  Serious: Yes (Other)
  Sender: FDA-Public Use
  Company Number: US-009507513-1307USA011164

PATIENT
  Sex: Female
  Weight: 68.48 kg

DRUGS (1)
  1. NUVARING [Suspect]
     Active Substance: ETHINYL ESTRADIOL\ETONOGESTREL
     Indication: CONTRACEPTION
     Dosage: UNK
     Route: 067
     Dates: start: 2005, end: 2009

REACTIONS (2)
  - Deep vein thrombosis [Unknown]
  - Breast prosthesis implantation [Unknown]

NARRATIVE: CASE EVENT DATE: 20090730
